FAERS Safety Report 6234313-8 (Version None)
Quarter: 2009Q2

REPORT INFORMATION
  Report Type: 
  Country: None (occurrence: None)
  Receive Date: 20090615
  Receipt Date: 20090507
  Transmission Date: 20091009
  Serious: No
  Sender: FDA-Public Use
  Company Number: DSA_33608_2009

PATIENT
  Sex: Male

DRUGS (1)
  1. XENAZINE [Suspect]
     Indication: HUNTINGTON'S CHOREA
     Dosage: 1/2 OF 12.5MG TABLET
     Dates: start: 20090502, end: 20090503

REACTIONS (6)
  - AGITATION [None]
  - ANXIETY [None]
  - DRUG ADMINISTRATION ERROR [None]
  - RESTLESSNESS [None]
  - SOMNOLENCE [None]
  - TIC [None]
